FAERS Safety Report 8369477-3 (Version None)
Quarter: 2012Q2

REPORT INFORMATION
  Report Type: 
  Country: None (occurrence: None)
  Receive Date: 20120518
  Receipt Date: 20120515
  Transmission Date: 20120825
  Serious: Yes (Hospitalization)
  Sender: FDA-Public Use
  Company Number: BR-PFIZER INC-2012118666

PATIENT
  Age: 82 Year
  Sex: Female
  Weight: 63 kg

DRUGS (3)
  1. DIAMICRON [Concomitant]
     Dosage: 60 MG, 1X/DAY
  2. SUTENT [Suspect]
     Indication: RENAL CANCER
     Dosage: 50 MG, 1X/DAY
     Route: 048
     Dates: start: 20120419, end: 20120508
  3. METFORMIN HYDROCHLORIDE [Concomitant]
     Dosage: 1000 MG, 1X/DAY

REACTIONS (4)
  - PLATELET COUNT DECREASED [None]
  - VOMITING [None]
  - DEHYDRATION [None]
  - DIARRHOEA [None]
